FAERS Safety Report 4432704-9 (Version None)
Quarter: 2004Q3

REPORT INFORMATION
  Report Type: 
  Country: None (occurrence: None)
  Receive Date: 20040820
  Receipt Date: 20040810
  Transmission Date: 20050211
  Serious: Yes (Other)
  Sender: FDA-Public Use
  Company Number: HQWYE134210AUG04

PATIENT
  Age: 19 Year
  Sex: Male

DRUGS (4)
  1. ZOSYN [Suspect]
     Indication: PANCREAS INFECTION
     Dosage: 13.5 GRAMS DAILY
  2. PIPERACILLIN [Suspect]
     Indication: PANCREAS INFECTION
     Dosage: 8 GRAMS DAILY
  3. METRONIDAZOLE [Concomitant]
  4. AMIKACIN [Concomitant]

REACTIONS (6)
  - BACTEROIDES INFECTION [None]
  - BONE MARROW DEPRESSION [None]
  - NEUTROPENIA [None]
  - PATHOGEN RESISTANCE [None]
  - THROMBOCYTOPENIA [None]
  - WHITE BLOOD CELL COUNT DECREASED [None]
